FAERS Safety Report 25460832 (Version 2)
Quarter: 2025Q2

REPORT INFORMATION
  Report Type: Spontaneous
  Country: JP (occurrence: JP)
  Receive Date: 20250620
  Receipt Date: 20250627
  Transmission Date: 20250717
  Serious: Yes (Disabling, Other)
  Sender: PFIZER
  Company Number: JP-ONO-2025JP010284

PATIENT
  Age: 8 Decade
  Sex: Female

DRUGS (4)
  1. BRAFTOVI [Suspect]
     Active Substance: ENCORAFENIB
     Indication: Colon cancer
     Route: 048
     Dates: start: 20250403, end: 202504
  2. BRAFTOVI [Suspect]
     Active Substance: ENCORAFENIB
     Route: 048
     Dates: start: 20250417
  3. MEKTOVI [Suspect]
     Active Substance: BINIMETINIB
     Indication: Colon cancer
     Route: 048
     Dates: start: 20250403, end: 202504
  4. CETUXIMAB SAROTALOCAN SODIUM [Concomitant]
     Active Substance: CETUXIMAB SAROTALOCAN SODIUM
     Indication: Colon cancer
     Route: 065
     Dates: start: 20250403

REACTIONS (5)
  - Second primary malignancy [Not Recovered/Not Resolved]
  - Skin cancer [Not Recovered/Not Resolved]
  - Visual acuity reduced [Recovered/Resolved]
  - Retinal disorder [Recovered/Resolved]
  - Melanocytic naevus [Not Recovered/Not Resolved]

NARRATIVE: CASE EVENT DATE: 20250401
